FAERS Safety Report 7456214-X (Version None)
Quarter: 2011Q2

REPORT INFORMATION
  Report Type: 
  Country: None (occurrence: None)
  Receive Date: 20110503
  Receipt Date: 20110429
  Transmission Date: 20111010
  Serious: Yes (Other)
  Sender: FDA-Public Use
  Company Number: US-CEPHALON-2011002134

PATIENT
  Sex: Male

DRUGS (2)
  1. TREANDA [Suspect]
     Indication: HODGKIN'S DISEASE
     Route: 042
  2. RITUXIMAB [Concomitant]

REACTIONS (5)
  - RASH [None]
  - NAUSEA [None]
  - VOMITING [None]
  - LEUKAEMIA [None]
  - NEUTROPENIA [None]
